FAERS Safety Report 10725101 (Version 1)
Quarter: 2015Q1

REPORT INFORMATION
  Report Type: Spontaneous
  Country: US (occurrence: None)
  Receive Date: 20150116
  Receipt Date: 20150116
  Transmission Date: 20150721
  Serious: Yes (Other)
  Sender: FDA-Public Use
  Company Number: INT_00615_2015

PATIENT
  Age: 41 Year
  Sex: Female

DRUGS (5)
  1. MESNA. [Concomitant]
     Active Substance: MESNA
  2. APREPITANT. [Concomitant]
     Active Substance: APREPITANT
  3. IFOSAMIDE [Suspect]
     Active Substance: IFOSFAMIDE
     Indication: SARCOMA UTERUS
     Dosage: MG/M2, (DAILY OVER 90 MIN) INTRAVENOUS(NOT OTHERWISE SPECIFIED)
     Route: 042
  4. CISPLATIN (HQ SPECIALTY) [Suspect]
     Active Substance: CISPLATIN
     Indication: SARCOMA UTERUS
     Dosage: (DAILY OVER 90 MIN) INTRAVNEOUS (NOT OTHERWISE SPECIFIED)
     Route: 042
  5. DEXAMETHASONE. [Concomitant]
     Active Substance: DEXAMETHASONE

REACTIONS (5)
  - Mental status changes [None]
  - Neurotoxicity [None]
  - Hallucinations, mixed [None]
  - Drug interaction [None]
  - Affect lability [None]
